FAERS Safety Report 4467992-6 (Version None)
Quarter: 2004Q4

REPORT INFORMATION
  Report Type: 
  Country: None (occurrence: None)
  Receive Date: 20041001
  Receipt Date: 20040920
  Transmission Date: 20050328
  Serious: Yes (Hospitalization)
  Sender: FDA-Public Use
  Company Number: HQWYE124320SEP04

PATIENT
  Age: 57 Year
  Sex: Male

DRUGS (8)
  1. CORDARONE [Suspect]
     Indication: ARRHYTHMIA
     Dosage: 200 MG TABLET,
     Route: 048
     Dates: start: 20040710, end: 20040817
  2. ALDACTONE [Suspect]
     Indication: CARDIAC FAILURE
     Dosage: 25 MG DOSE FORM,
     Route: 048
     Dates: start: 20040710, end: 20040804
  3. BISOPROLOL FUMARATE [Suspect]
     Indication: CARDIAC FAILURE
     Route: 048
     Dates: start: 20040710
  4. COVERSYL (PERINDOPRIL,   ) [Suspect]
     Indication: CARDIAC FAILURE
     Route: 048
     Dates: start: 20040710, end: 20040804
  5. ASPIRIN [Suspect]
     Indication: CARDIAC FAILURE
     Route: 048
     Dates: start: 20040710
  6. LASIX [Suspect]
     Indication: CARDIAC FAILURE
     Route: 048
     Dates: start: 20040710
  7. DIAMICRON (GLICLAZIDE) [Concomitant]
  8. GLUCOPHAGE [Concomitant]

REACTIONS (1)
  - PEMPHIGOID [None]
